FAERS Safety Report 8344927-7 (Version None)
Quarter: 2012Q2

REPORT INFORMATION
  Report Type: 
  Country: None (occurrence: None)
  Receive Date: 20120508
  Receipt Date: 20090401
  Transmission Date: 20120825
  Serious: Yes (Hospitalization)
  Sender: FDA-Public Use
  Company Number: US-TEVA-2009002830

PATIENT
  Sex: Female

DRUGS (2)
  1. AMRIX [Suspect]
     Route: 048
  2. FENTANYL [Concomitant]

REACTIONS (1)
  - CONSTIPATION [None]
